FAERS Safety Report 25064915 (Version 3)
Quarter: 2025Q4

REPORT INFORMATION
  Report Type: Spontaneous
  Country: EU (occurrence: EU)
  Receive Date: 20250311
  Receipt Date: 20251008
  Transmission Date: 20260117
  Serious: Yes (Death, Hospitalization, Other)
  Sender: ALEXION PHARMACEUTICALS
  Company Number: EU-ASTRAZENECA-202503GLO006889FR

PATIENT
  Age: 34 Year
  Sex: Male
  Weight: 79 kg

DRUGS (37)
  1. QUETIAPINE FUMARATE [Suspect]
     Active Substance: QUETIAPINE FUMARATE
     Dosage: 18 MILLIGRAM
     Route: 065
  2. BROMAZEPAM [Suspect]
     Active Substance: BROMAZEPAM
     Dosage: 6 MILLIGRAM, QW
     Route: 065
  3. FENTANYL [Concomitant]
     Active Substance: FENTANYL
     Dosage: UNK
     Route: 065
  4. COCAINE [Suspect]
     Active Substance: COCAINE
     Dosage: UNK
     Route: 065
  5. VALIUM [Suspect]
     Active Substance: DIAZEPAM
     Dosage: UNK
     Route: 065
  6. CODEINE [Suspect]
     Active Substance: CODEINE
     Dosage: UNK
     Route: 065
  7. ACETAMINOPHEN [Suspect]
     Active Substance: ACETAMINOPHEN
     Dosage: UNK
     Route: 065
  8. TRAMADOL [Suspect]
     Active Substance: TRAMADOL
     Dosage: UNK
     Route: 065
  9. CLONAZEPAM [Suspect]
     Active Substance: CLONAZEPAM
     Route: 065
  10. IBUPROFEN [Suspect]
     Active Substance: IBUPROFEN
     Route: 065
  11. CLOTIAZEPAM [Suspect]
     Active Substance: CLOTIAZEPAM
     Route: 065
  12. KETAMINE [Suspect]
     Active Substance: KETAMINE
     Route: 065
  13. TRAMADOL HYDROCHLORIDE [Suspect]
     Active Substance: TRAMADOL HYDROCHLORIDE
     Route: 065
  14. PRAZEPAM [Suspect]
     Active Substance: PRAZEPAM
     Route: 065
  15. THIOCOLCHICOSIDE [Suspect]
     Active Substance: THIOCOLCHICOSIDE
     Route: 065
  16. PAROXETINE MESYLATE [Suspect]
     Active Substance: PAROXETINE MESYLATE
     Route: 065
  17. CODEINE PHOSPHATE\IBUPROFEN [Suspect]
     Active Substance: CODEINE PHOSPHATE\IBUPROFEN
     Route: 065
  18. ETIFOXINE [Suspect]
     Active Substance: ETIFOXINE
     Route: 065
  19. SKENAN [Suspect]
     Active Substance: MORPHINE SULFATE
     Route: 065
  20. OXYCONTIN [Suspect]
     Active Substance: OXYCODONE HYDROCHLORIDE
     Route: 065
  21. CLOBAZAM [Suspect]
     Active Substance: CLOBAZAM
     Route: 065
  22. ARTANE [Suspect]
     Active Substance: TRIHEXYPHENIDYL HYDROCHLORIDE
     Route: 065
  23. MIANSERIN HYDROCHLORIDE [Suspect]
     Active Substance: MIANSERIN HYDROCHLORIDE
     Route: 065
  24. PAROXETINE [Suspect]
     Active Substance: PAROXETINE
     Route: 065
  25. TRAMADOL HYDROCHLORIDE [Suspect]
     Active Substance: TRAMADOL HYDROCHLORIDE
  26. ACETAMINOPHEN\CODEINE PHOSPHATE [Suspect]
     Active Substance: ACETAMINOPHEN\CODEINE PHOSPHATE
     Route: 065
  27. AMISULPRIDE [Suspect]
     Active Substance: AMISULPRIDE
     Route: 065
  28. MEPHENESIN [Suspect]
     Active Substance: MEPHENESIN
     Route: 065
  29. MORPHINE [Suspect]
     Active Substance: MORPHINE
     Dosage: UNK
     Route: 065
  30. NAFRONYL [Suspect]
     Active Substance: NAFRONYL
     Route: 065
  31. NORDAZEPAM [Suspect]
     Active Substance: NORDAZEPAM
     Route: 065
  32. OXAZEPAM [Suspect]
     Active Substance: OXAZEPAM
     Route: 065
  33. TEMAZEPAM [Suspect]
     Active Substance: TEMAZEPAM
     Route: 065
  34. OXAZEPAM [Suspect]
     Active Substance: OXAZEPAM
     Route: 065
  35. ALPRAZOLAM [Suspect]
     Active Substance: ALPRAZOLAM
     Route: 065
  36. ZOPICLONE [Suspect]
     Active Substance: ZOPICLONE
     Route: 065
  37. NIFUROXAZIDE [Suspect]
     Active Substance: NIFUROXAZIDE
     Route: 065

REACTIONS (57)
  - Toxicity to various agents [Fatal]
  - Hepatic cytolysis [Unknown]
  - Nephropathy toxic [Unknown]
  - Liver injury [Unknown]
  - Coma [Fatal]
  - Acute pulmonary oedema [Fatal]
  - Myocarditis [Unknown]
  - Bladder injury [Unknown]
  - Coronary artery disease [Unknown]
  - Pancreatic injury [Unknown]
  - Prescribed overdose [Unknown]
  - Hepatitis acute [Fatal]
  - Accidental poisoning [Fatal]
  - Respiratory depression [Fatal]
  - Somnolence [Fatal]
  - Encephalopathy [Fatal]
  - Overdose [Fatal]
  - Cardiomyopathy [Fatal]
  - Myocarditis [Fatal]
  - Labelled drug-drug interaction issue [Fatal]
  - Hyperglycaemia [Fatal]
  - Cholecystitis infective [Fatal]
  - Confusional state [Fatal]
  - Jaundice [Fatal]
  - Drug screen false positive [Fatal]
  - Cardiac disorder [Unknown]
  - Synovitis [Unknown]
  - Aspiration [Fatal]
  - Arrhythmia [Unknown]
  - Leukocytosis [Unknown]
  - Toxicity to various agents [Fatal]
  - Coronary artery stenosis [Fatal]
  - Pancreas infection [Fatal]
  - Myocardial infarction [Fatal]
  - Cardiac disorder [Unknown]
  - Synovitis [Unknown]
  - Inflammation [Unknown]
  - Hypersomnia [Unknown]
  - Stenosis [Fatal]
  - Hepatic enzyme increased [Fatal]
  - White blood cell count increased [Fatal]
  - Product prescribing issue [Unknown]
  - Thirst [Unknown]
  - Panic attack [Unknown]
  - Logorrhoea [Unknown]
  - Asteatosis [Unknown]
  - Hepatobiliary disease [Unknown]
  - Hypotension [Unknown]
  - Monocytosis [Unknown]
  - Necrosis [Fatal]
  - Aggression [Unknown]
  - Cardio-respiratory arrest [Fatal]
  - Intentional self-injury [Fatal]
  - Drug abuse [Fatal]
  - Hepatic failure [Unknown]
  - Gallbladder injury [Fatal]
  - Ketosis [Fatal]
